FAERS Safety Report 5724360-4 (Version None)
Quarter: 2008Q2

REPORT INFORMATION
  Report Type: 
  Country: None (occurrence: None)
  Receive Date: 20080430
  Receipt Date: 20080418
  Transmission Date: 20081010
  Serious: Yes (Other)
  Sender: FDA-Public Use
  Company Number: SI-PFIZER INC-2008029568

PATIENT
  Age: 43 Year
  Sex: Male

DRUGS (1)
  1. RELPAX [Suspect]
     Indication: MIGRAINE
     Route: 048
     Dates: start: 20080321, end: 20080326

REACTIONS (5)
  - COUGH [None]
  - DYSPNOEA [None]
  - INSOMNIA [None]
  - OEDEMA PERIPHERAL [None]
  - SARCOIDOSIS [None]
